FAERS Safety Report 6828690-4 (Version None)
Quarter: 2010Q3

REPORT INFORMATION
  Report Type: 
  Country: None (occurrence: None)
  Receive Date: 20100709
  Receipt Date: 20070220
  Transmission Date: 20110219
  Serious: No
  Sender: FDA-Public Use
  Company Number: US-PFIZER INC-2007014102

PATIENT
  Sex: Female
  Weight: 77.11 kg

DRUGS (1)
  1. CHANTIX [Suspect]
     Indication: SMOKING CESSATION THERAPY
     Dates: start: 20070201

REACTIONS (3)
  - HEAD DISCOMFORT [None]
  - NAUSEA [None]
  - VERTIGO [None]
